FAERS Safety Report 11529425 (Version 1)
Quarter: 2015Q3

REPORT INFORMATION
  Report Type: Spontaneous
  Country: US (occurrence: US)
  Receive Date: 20150921
  Receipt Date: 20150921
  Transmission Date: 20151125
  Serious: No
  Sender: FDA-Public Use
  Company Number: US-IROKO PHARMACEUTICALS LLC-US-I09001-15-00106

PATIENT
  Sex: Female

DRUGS (1)
  1. TIVORBEX [Suspect]
     Active Substance: INDOMETHACIN
     Indication: BACK PAIN
     Route: 065
     Dates: start: 201506, end: 2015

REACTIONS (1)
  - Nausea [Recovered/Resolved]

NARRATIVE: CASE EVENT DATE: 201506
